FAERS Safety Report 5900169-3 (Version None)
Quarter: 2008Q3

REPORT INFORMATION
  Report Type: 
  Country: None (occurrence: None)
  Receive Date: 20080926
  Receipt Date: 20080915
  Transmission Date: 20090109
  Serious: Yes (Hospitalization, Other)
  Sender: FDA-Public Use
  Company Number: US-ROCHE-583075

PATIENT
  Sex: Female

DRUGS (6)
  1. PEG-INTERFERON A-2A (RO 25-8310) [Suspect]
     Indication: HEPATITIS C
     Dosage: FORM: PFS
     Route: 065
     Dates: start: 20080703
  2. RIBAVIRIN [Suspect]
     Dosage: FORM: PILL DOSE: DIVIDED DOSES
     Route: 065
     Dates: start: 20080703, end: 20080824
  3. RIBAVIRIN [Suspect]
     Route: 065
  4. DILANTIN [Concomitant]
  5. RISPERDAL [Concomitant]
  6. 1 CONCOMITANT DRUG [Concomitant]
     Dosage: DRUG: UNSPECIFIED PSYCH MEDS

REACTIONS (2)
  - INFLUENZA LIKE ILLNESS [None]
  - TRANSIENT ISCHAEMIC ATTACK [None]
